FAERS Safety Report 24347623 (Version 1)
Quarter: 2024Q3

REPORT INFORMATION
  Report Type: Spontaneous
  Country: US (occurrence: US)
  Receive Date: 20240922
  Receipt Date: 20240922
  Transmission Date: 20241016
  Serious: Yes (Life-Threatening)
  Sender: ROCHE
  Company Number: US-BoehringerIngelheim-2024-BI-052080

PATIENT
  Age: 79 Year
  Sex: Male

DRUGS (2)
  1. TENECTEPLASE [Suspect]
     Active Substance: TENECTEPLASE
     Indication: Ischaemic stroke
     Dosage: 18MG (0.25 MG/KG)
     Route: 065
  2. LISINOPRIL [Concomitant]
     Active Substance: LISINOPRIL
     Indication: Essential hypertension

REACTIONS (2)
  - Angioedema [Recovered/Resolved]
  - Haemorrhagic transformation stroke [Not Recovered/Not Resolved]
